FAERS Safety Report 10601358 (Version 3)
Quarter: 2014Q4

REPORT INFORMATION
  Report Type: Spontaneous
  Country: US (occurrence: None)
  Receive Date: 20141120
  Receipt Date: 20141223
  Transmission Date: 20150529
  Serious: Yes (Hospitalization)
  Sender: FDA-Public Use
  Company Number: 2014MPI01472

PATIENT
  Age: 25 Year
  Sex: Male
  Weight: 78 kg

DRUGS (9)
  1. DOXORUBICIN (DOXORUBICIN) INJECTION [Suspect]
     Active Substance: DOXORUBICIN
     Indication: HODGKIN^S DISEASE
     Route: 042
     Dates: start: 20141030, end: 20141030
  2. KENALOG [Concomitant]
     Active Substance: TRIAMCINOLONE ACETONIDE
  3. ZOFRAN (ONDANSETRON HYDROCHLORIDE) [Concomitant]
  4. DACARBAZINE (DACARBAZINE) INJECTION [Suspect]
     Active Substance: DACARBAZINE
     Indication: HODGKIN^S DISEASE
     Route: 042
     Dates: start: 20141030, end: 20141030
  5. BRENTUXIMAB VEDOTIN [Suspect]
     Active Substance: BRENTUXIMAB VEDOTIN
     Indication: HODGKIN^S DISEASE
     Route: 042
     Dates: start: 20141031, end: 20141031
  6. VINBLASTINE (VINBLASTINE SULFATE) INJECTION [Suspect]
     Active Substance: VINBLASTINE
     Indication: HODGKIN^S DISEASE
     Route: 042
     Dates: start: 20141030, end: 20141030
  7. ALBUTEROL (SALBUTAMOL SULFATE) [Concomitant]
  8. LAC-HYDRIN (AMMONIUM LACTATE) [Concomitant]
  9. BENADRYL [Concomitant]
     Active Substance: DIPHENHYDRAMINE HYDROCHLORIDE

REACTIONS (3)
  - Electrocardiogram ST segment elevation [None]
  - Pericarditis [None]
  - Pleural effusion [None]

NARRATIVE: CASE EVENT DATE: 20141101
